FAERS Safety Report 16377212 (Version 1)
Quarter: 2019Q2

REPORT INFORMATION
  Report Type: Report from Study
  Country: FR (occurrence: FR)
  Receive Date: 20190531
  Receipt Date: 20190531
  Transmission Date: 20190711
  Serious: Yes (Hospitalization, Other)
  Sender: FDA-Public Use
  Company Number: FR-MYLANLABS-2019M1049630

PATIENT
  Age: 55 Year
  Sex: Male
  Weight: 74 kg

DRUGS (24)
  1. ENBREL [Suspect]
     Active Substance: ETANERCEPT
     Indication: PSORIASIS
     Dosage: 50 MG, 2X/WEEK
     Route: 058
     Dates: start: 20150528, end: 20150828
  2. HUMIRA [Suspect]
     Active Substance: ADALIMUMAB
     Dosage: 40 EVERY 2 WEEKS
     Route: 058
     Dates: start: 20130325, end: 20150325
  3. DEXERYL                            /01579901/ [Concomitant]
     Active Substance: GLYCERIN\MINERAL OIL\PETROLATUM
     Dosage: DOSAGE FORM: UNSPECIFIED
     Route: 065
     Dates: start: 20130318
  4. ACITRETIN. [Concomitant]
     Active Substance: ACITRETIN
     Dosage: DOSAGE FORM: UNSPECIFIED
     Route: 048
     Dates: start: 20160926, end: 20161026
  5. DIPROSONE                          /00008502/ [Concomitant]
     Active Substance: BETAMETHASONE SODIUM PHOSPHATE
     Dosage: DOSAGE FORM: UNSPECIFIED
     Route: 065
     Dates: start: 20141027, end: 20150202
  6. ENBREL [Suspect]
     Active Substance: ETANERCEPT
     Dosage: 50 MG, WEEKLY
     Route: 058
     Dates: start: 201508, end: 20150910
  7. CICLOPIROX. [Concomitant]
     Active Substance: CICLOPIROX
     Dosage: DOSAGE FORM: UNSPECIFIED
     Route: 065
     Dates: start: 20131209, end: 20140310
  8. XAMIOL                             /06356901/ [Concomitant]
     Dosage: DOSAGE FORM: UNSPECIFIED
     Route: 065
     Dates: start: 20130318, end: 20140310
  9. DAIVOBET [Concomitant]
     Active Substance: BETAMETHASONE DIPROPIONATE\CALCIPOTRIENE
     Dosage: DOSAGE FORM: UNSPECIFIED
     Route: 065
     Dates: start: 20130318
  10. BETESIL [Concomitant]
     Dosage: DOSAGE FORM: UNSPECIFIED
     Route: 065
     Dates: start: 20151123, end: 20160222
  11. SEBIPROX [Concomitant]
     Active Substance: CICLOPIROX OLAMINE
     Dosage: DOSAGE FORM: UNSPECIFIED
     Route: 065
     Dates: start: 20160222, end: 20160926
  12. METHOTREXATE. [Suspect]
     Active Substance: METHOTREXATE
     Indication: PSORIASIS
     Dosage: DOSAGE FORM: UNSPECIFIED
     Route: 048
     Dates: start: 200911, end: 201001
  13. METHOTREXATE. [Suspect]
     Active Substance: METHOTREXATE
     Dosage: DOSAGE FORM: UNSPECIFIED
     Route: 048
     Dates: start: 201001, end: 201004
  14. ACITRETIN. [Concomitant]
     Active Substance: ACITRETIN
     Dosage: DOSAGE FORM: UNSPECIFIED
     Route: 048
     Dates: start: 20180108, end: 201803
  15. DESLORATADINE. [Concomitant]
     Active Substance: DESLORATADINE
     Dosage: DOSAGE FORM: UNSPECIFIED
     Route: 065
     Dates: start: 20150220, end: 20150320
  16. STELARA [Suspect]
     Active Substance: USTEKINUMAB
     Dosage: 45 MG, EVERY 12 WEEKS
     Route: 058
     Dates: start: 20100519, end: 20130119
  17. HUMIRA [Suspect]
     Active Substance: ADALIMUMAB
     Indication: PSORIASIS
     Dosage: 80 MG ONCE WEEKLY
     Route: 058
     Dates: start: 20130321, end: 20150325
  18. FLIXOVATE [Concomitant]
     Active Substance: FLUTICASONE PROPIONATE
     Dosage: DOSAGE FORM: UNSPECIFIED
     Route: 065
     Dates: start: 20160523, end: 20160926
  19. BETNEVAL [Concomitant]
     Active Substance: BETAMETHASONE VALERATE
     Dosage: DOSAGE FORM: UNSPECIFIED
     Route: 065
     Dates: start: 20140623, end: 20141027
  20. METHOTREXATE. [Suspect]
     Active Substance: METHOTREXATE
     Dosage: 15 MG, WEEKLY
     Route: 048
     Dates: start: 20150528, end: 20150910
  21. STELARA [Suspect]
     Active Substance: USTEKINUMAB
     Indication: PSORIASIS
     Dosage: 45 MG, EVERY 4 WEEKS (AT M0 AND M1)
     Route: 058
     Dates: start: 20100419, end: 20130109
  22. SEBIPROX [Concomitant]
     Active Substance: CICLOPIROX OLAMINE
     Dosage: DOSAGE FORM: UNSPECIFIED
     Route: 065
     Dates: start: 20130617, end: 20140310
  23. ACITRETIN. [Concomitant]
     Active Substance: ACITRETIN
     Indication: PRODUCT USED FOR UNKNOWN INDICATION
     Dosage: DOSAGE FORM: UNSPECIFIED
     Route: 048
     Dates: start: 201803
  24. LOCAPRED [Concomitant]
     Active Substance: DESONIDE
     Dosage: DOSAGE FORM: UNSPECIFIED
     Route: 065
     Dates: start: 20140623, end: 20141027

REACTIONS (3)
  - Colon cancer [Recovered/Resolved]
  - Drug ineffective [Unknown]
  - Colorectal cancer [Recovered/Resolved]

NARRATIVE: CASE EVENT DATE: 201509
